FAERS Safety Report 18683753 (Version 1)
Quarter: 2020Q4

REPORT INFORMATION
  Report Type: Spontaneous
  Country: US (occurrence: FR)
  Receive Date: 20201230
  Receipt Date: 20201230
  Transmission Date: 20210114
  Serious: Yes (Other)
  Sender: FDA-Public Use
  Company Number: FR-BIOMARINAP-FR-2020-134112

PATIENT
  Age: 21 Year
  Sex: Male

DRUGS (1)
  1. ALDURAZYME [Suspect]
     Active Substance: LARONIDASE
     Indication: MUCOPOLYSACCHARIDOSIS I
     Dosage: UNK
     Route: 065
     Dates: start: 200211

REACTIONS (5)
  - Transplant rejection [Unknown]
  - Hip surgery [Unknown]
  - Off label use [Unknown]
  - Spinal operation [Unknown]
  - Corneal transplant [Unknown]

NARRATIVE: CASE EVENT DATE: 2008
